FAERS Safety Report 18423877 (Version 3)
Quarter: 2021Q2

REPORT INFORMATION
  Report Type: Spontaneous
  Country: SE (occurrence: SE)
  Receive Date: 20201024
  Receipt Date: 20210602
  Transmission Date: 20210717
  Serious: Yes (Other)
  Sender: FDA-Public Use
  Company Number: SE-NOVOPROD-759838

PATIENT
  Age: 54 Year
  Sex: Female

DRUGS (10)
  1. VICTOZA [Suspect]
     Active Substance: LIRAGLUTIDE
     Indication: DIABETES MELLITUS
     Dosage: 3 MG, QD
     Route: 058
     Dates: start: 20161110, end: 20200315
  2. METOPROLOL. [Concomitant]
     Active Substance: METOPROLOL
     Dosage: 50 MG, QD
     Route: 048
     Dates: start: 20151006, end: 20170503
  3. SAROTEN [Concomitant]
     Active Substance: AMITRIPTYLINE
     Dosage: 1?2 TABLET FOR THE NIGHT
     Route: 048
     Dates: start: 20130404
  4. OMECAT [Concomitant]
     Active Substance: OMEPRAZOLE
     Dosage: 20 MG, QD
     Route: 048
     Dates: start: 20111026
  5. ALVEDON [Concomitant]
     Active Substance: ACETAMINOPHEN
     Dosage: 1?2 V.B (AS NECESSARY)
     Route: 048
     Dates: start: 20110101
  6. SALURES [Concomitant]
     Active Substance: BENDROFLUMETHIAZIDE
     Dosage: 2.5 MG, QD
     Route: 048
     Dates: start: 20120208
  7. SIMVASTATIN BLUEFISH [Concomitant]
     Active Substance: SIMVASTATIN
     Dosage: 20 MG, QD
     Route: 048
     Dates: start: 20140502, end: 20190502
  8. PROPAVAN [Concomitant]
     Active Substance: PROPIOMAZINE
     Dosage: 25 MG, QD
     Route: 048
     Dates: start: 20160907, end: 20190302
  9. METFORMIN ACTAVIS [Concomitant]
     Active Substance: METFORMIN HYDROCHLORIDE
     Dosage: 3000 MG, QD
     Route: 048
     Dates: start: 20140414
  10. CANDESARSTAD [Concomitant]
     Dosage: 16 MG, QD
     Route: 048
     Dates: start: 20130604

REACTIONS (8)
  - Pain in extremity [Not Recovered/Not Resolved]
  - Nausea [Recovered/Resolved]
  - Abdominal pain [Recovered/Resolved]
  - Muscle fatigue [Not Recovered/Not Resolved]
  - Weight decreased [Recovered/Resolved]
  - Muscle atrophy [Not Recovered/Not Resolved]
  - Decreased appetite [Recovered/Resolved]
  - Muscle spasms [Not Recovered/Not Resolved]

NARRATIVE: CASE EVENT DATE: 2016
